FAERS Safety Report 4822982-6 (Version None)
Quarter: 2005Q4

REPORT INFORMATION
  Report Type: 
  Country: None (occurrence: None)
  Receive Date: 20051108
  Receipt Date: 20051028
  Transmission Date: 20060501
  Serious: Yes (Death, Other)
  Sender: FDA-Public Use
  Company Number: US-JNJFOC-20051100117

PATIENT
  Age: 24 Year
  Sex: Male
  Weight: 146.97 kg

DRUGS (4)
  1. RISPERDAL [Suspect]
     Route: 048
  2. RISPERDAL [Suspect]
     Indication: SCHIZOPHRENIA
     Route: 048
  3. ZYPREXA [Suspect]
     Route: 048
  4. ZYPREXA [Suspect]
     Indication: SCHIZOPHRENIA
     Route: 048

REACTIONS (10)
  - DEHYDRATION [None]
  - DIABETES MELLITUS [None]
  - DIABETIC COMA [None]
  - DIABETIC KETOACIDOSIS [None]
  - GASTROENTERITIS [None]
  - HYPERTENSION [None]
  - PAIN [None]
  - PANCREATITIS [None]
  - TACHYCARDIA [None]
  - WEIGHT INCREASED [None]
